FAERS Safety Report 13019224 (Version 1)
Quarter: 2016Q4

REPORT INFORMATION
  Report Type: Spontaneous
  Country: US (occurrence: US)
  Receive Date: 20161212
  Receipt Date: 20161212
  Transmission Date: 20170207
  Serious: No
  Sender: FDA-Public Use
  Company Number: US-ELI_LILLY_AND_COMPANY-US201607010588

PATIENT
  Sex: Male
  Weight: 91 kg

DRUGS (1)
  1. CYMBALTA [Suspect]
     Active Substance: DULOXETINE HYDROCHLORIDE
     Indication: PRODUCT USED FOR UNKNOWN INDICATION
     Dosage: UNK, UNKNOWN
     Route: 065
     Dates: start: 201207, end: 201403

REACTIONS (8)
  - Lethargy [Unknown]
  - Fatigue [Unknown]
  - Insomnia [Not Recovered/Not Resolved]
  - Dysphoria [Unknown]
  - Anxiety [Not Recovered/Not Resolved]
  - Agitation [Unknown]
  - Confusional state [Unknown]
  - Drug withdrawal syndrome [Unknown]
